FAERS Safety Report 8242803-1 (Version None)
Quarter: 2012Q1

REPORT INFORMATION
  Report Type: 
  Country: None (occurrence: None)
  Receive Date: 20120329
  Receipt Date: 20120322
  Transmission Date: 20120608
  Serious: Yes (Hospitalization)
  Sender: FDA-Public Use
  Company Number: US-BAYER-2011-116311

PATIENT
  Age: 29 Year
  Sex: Female
  Weight: 63.492 kg

DRUGS (14)
  1. ZEGERID [Concomitant]
     Dosage: 40 MG, UNK
     Dates: start: 20090930
  2. AMOXICILLIN AND CLAVULANATE POTASSIUM [Concomitant]
     Dosage: 875 MG, UNK
     Dates: start: 20090729
  3. ACETAMINOPHEN AND HYDROCODONE BITARTRATE [Concomitant]
     Dosage: UNK
     Dates: start: 20090818
  4. DOCUSATE [Concomitant]
     Dosage: UNK
     Dates: start: 20090818
  5. LO/OVRAL [Concomitant]
  6. ZYRTEC [Concomitant]
     Dosage: 10 MG, UNK
     Dates: start: 20020101
  7. ONE-A-DAY [MINERALS NOS,VITAMINS NOS] [Concomitant]
     Dosage: UNK
     Dates: start: 20060101, end: 20110101
  8. ROLAIDS [Concomitant]
     Dosage: UNK
     Dates: start: 20090930
  9. LOESTRIN 1.5/30 [Concomitant]
  10. FLAX SEED OIL [Concomitant]
     Dosage: 1200 MG, UNK
     Dates: start: 20091015
  11. YAZ [Suspect]
     Indication: CONTRACEPTION
     Dosage: UNK
     Route: 048
     Dates: start: 20060101, end: 20100101
  12. LEVALBUTEROL HCL [Concomitant]
     Dosage: UNK
     Dates: start: 20090818
  13. LIALDA [Concomitant]
     Dosage: UNK
     Dates: start: 20070101, end: 20100101
  14. CIPROFLOXACIN [Concomitant]
     Dosage: 500 MG, UNK
     Dates: start: 20090717

REACTIONS (4)
  - CHOLECYSTITIS [None]
  - EMOTIONAL DISTRESS [None]
  - PAIN [None]
  - CHOLECYSTITIS CHRONIC [None]
